FAERS Safety Report 8198043-8 (Version None)
Quarter: 2012Q1

REPORT INFORMATION
  Report Type: 
  Country: None (occurrence: None)
  Receive Date: 20120309
  Receipt Date: 20120302
  Transmission Date: 20120608
  Serious: Yes (Hospitalization)
  Sender: FDA-Public Use
  Company Number: US-JNJFOC-20120302717

PATIENT
  Sex: Male

DRUGS (6)
  1. COGENTIN [Concomitant]
     Route: 048
  2. INVEGA SUSTENNA [Suspect]
     Indication: PRODUCT USED FOR UNKNOWN INDICATION
     Route: 030
  3. XANAX XR [Concomitant]
     Route: 048
  4. MIRTAZAPINE [Concomitant]
     Route: 048
  5. LAMICTAL [Concomitant]
     Route: 048
  6. RISPERIDONE [Concomitant]
     Route: 048

REACTIONS (1)
  - CONVULSION [None]
